FAERS Safety Report 23733982 (Version 4)
Quarter: 2025Q3

REPORT INFORMATION
  Report Type: Report from Study
  Country: US (occurrence: US)
  Receive Date: 20240412
  Receipt Date: 20250901
  Transmission Date: 20251021
  Serious: Yes (Hospitalization, Other)
  Sender: TAKEDA
  Company Number: US-TAKEDA-US201944941

PATIENT
  Sex: Female
  Weight: 61 kg

DRUGS (17)
  1. LANADELUMAB [Suspect]
     Active Substance: LANADELUMAB
     Indication: Immune system disorder
     Dosage: 300 MILLIGRAM, Q2WEEKS
  2. LANADELUMAB [Suspect]
     Active Substance: LANADELUMAB
     Indication: Ill-defined disorder
  3. LANADELUMAB [Suspect]
     Active Substance: LANADELUMAB
     Indication: Gastrooesophageal reflux disease
  4. LANADELUMAB [Suspect]
     Active Substance: LANADELUMAB
     Indication: Osteoporosis
  5. LANADELUMAB [Suspect]
     Active Substance: LANADELUMAB
     Indication: Illness
  6. ICATIBANT [Suspect]
     Active Substance: ICATIBANT ACETATE
     Indication: Product used for unknown indication
  7. ICATIBANT [Suspect]
     Active Substance: ICATIBANT ACETATE
  8. PRAVASTATIN [Suspect]
     Active Substance: PRAVASTATIN
     Indication: Product used for unknown indication
  9. EPINEPHRINE [Concomitant]
     Active Substance: EPINEPHRINE
  10. METOPROLOL TARTRATE [Concomitant]
     Active Substance: METOPROLOL TARTRATE
  11. HAEGARDA [Concomitant]
     Active Substance: HUMAN C1-ESTERASE INHIBITOR
  12. MICARDIS [Concomitant]
     Active Substance: TELMISARTAN
  13. PRAVASTATIN SODIUM [Concomitant]
     Active Substance: PRAVASTATIN SODIUM
  14. VERAPAMIL [Concomitant]
     Active Substance: VERAPAMIL HYDROCHLORIDE
  15. ADVIL [Concomitant]
     Active Substance: IBUPROFEN
  16. CYANOCOBALAMIN [Concomitant]
     Active Substance: CYANOCOBALAMIN
  17. VITAMIN D [Concomitant]
     Active Substance: VITAMIN D NOS

REACTIONS (10)
  - Rotator cuff syndrome [Unknown]
  - Cataract [Unknown]
  - Angioedema [Unknown]
  - Kidney infection [Unknown]
  - Limb discomfort [Unknown]
  - Muscle spasms [Unknown]
  - Quality of life decreased [Unknown]
  - Drug ineffective [Unknown]
  - Asthenia [Unknown]
  - Urticaria [Unknown]
